FAERS Safety Report 20369523 (Version 1)
Quarter: 2022Q1

REPORT INFORMATION
  Report Type: Spontaneous
  Country: US (occurrence: US)
  Receive Date: 20220124
  Receipt Date: 20220124
  Transmission Date: 20220423
  Serious: Yes (Death, Other)
  Sender: FDA-Public Use
  Company Number: US-COLLEGIUM PHARMACEUTICAL, INC.-2022CGM00026

PATIENT
  Age: 90 Year
  Sex: Female

DRUGS (1)
  1. XTAMPZA ER [Suspect]
     Active Substance: OXYCODONE
     Indication: Pain
     Dosage: CONSUMER WOULD OPEN THE CAPSULE UP AND PUT THE MICROSPHERES ON THE SPOON TO SWALLOW
     Route: 048

REACTIONS (3)
  - Death [Fatal]
  - Aspiration [Unknown]
  - Dyspnoea [Unknown]
